FAERS Safety Report 5107659-4 (Version None)
Quarter: 2006Q3

REPORT INFORMATION
  Report Type: 
  Country: None (occurrence: None)
  Receive Date: 20060914
  Receipt Date: 20060906
  Transmission Date: 20061208
  Serious: Yes (Hospitalization)
  Sender: FDA-Public Use
  Company Number: 2006-04856

PATIENT
  Age: 56 Year
  Sex: Male
  Weight: 86 kg

DRUGS (3)
  1. FLUOROURACIL [Suspect]
     Indication: COLON CANCER
     Dosage: SEE ARTICLE FOR REGIMEN LV5FU2, INTRAVENOUS
     Route: 042
     Dates: start: 20020826
  2. FLUOROURACIL [Suspect]
     Indication: COLON CANCER
     Dosage: SEE ARTICLE FOR REGIMEN LV5FU2, INTRAVENOUS
     Route: 042
     Dates: start: 20020911
  3. FOLIC ACID [Concomitant]

REACTIONS (2)
  - COMA [None]
  - HYPERAMMONAEMIA [None]
